FAERS Safety Report 10428425 (Version 3)
Quarter: 2014Q3

REPORT INFORMATION
  Report Type: Spontaneous
  Country: US (occurrence: None)
  Receive Date: 20140829
  Receipt Date: 20140930
  Transmission Date: 20150326
  Serious: Yes (Hospitalization, Other)
  Sender: FDA-Public Use
  Company Number: 2014-US-010673

PATIENT
  Age: 63 Year
  Sex: Female
  Weight: 63.5 kg

DRUGS (18)
  1. NAPROXEN. [Concomitant]
     Active Substance: NAPROXEN
  2. LUMIGAN (BIMATOPROST) [Concomitant]
  3. MAGNESIUM [Concomitant]
     Active Substance: MAGNESIUM
  4. NUVIGIL [Concomitant]
     Active Substance: ARMODAFINIL
  5. TIMOLOL MALEATE (TIMOLOL MALEATE) EYE DROPS [Concomitant]
  6. XYREM [Suspect]
     Active Substance: SODIUM OXYBATE
     Indication: NARCOLEPSY
     Dates: start: 201209, end: 2012
  7. AMLODIPINE (AMLODIPINE BESILATE) [Concomitant]
  8. ASA (ACETYLSALIYLIC ACID) [Concomitant]
  9. PLAQUENIL [Concomitant]
     Active Substance: HYDROXYCHLOROQUINE SULFATE
  10. SINGULAIR [Concomitant]
     Active Substance: MONTELUKAST SODIUM
  11. VITAMIN D3 [Concomitant]
     Active Substance: CHOLECALCIFEROL
  12. BENICAR (OLMESARTAN MEDOXIMIL) [Concomitant]
  13. VITAMIN B12 [Concomitant]
     Active Substance: CYANOCOBALAMIN
  14. FLONASE [Concomitant]
     Active Substance: FLUTICASONE PROPIONATE
  15. XYREM [Suspect]
     Active Substance: SODIUM OXYBATE
     Indication: CATAPLEXY
     Dates: start: 201209, end: 2012
  16. LYRICA [Concomitant]
     Active Substance: PREGABALIN
  17. IRON (FERROUS SULFATE) [Concomitant]
  18. MULTIVITAMINS  (ASCORBIC ACID, ERGOCALCIFEROL, FOLIC ACID, NICOTINAMIDE, PANTHENOL, RETINOL, RIBOFLAVIN, THIAMINE HYDROCHLORIDE) [Concomitant]
     Active Substance: VITAMINS

REACTIONS (3)
  - Fall [None]
  - Muscle spasms [None]
  - Neck injury [None]

NARRATIVE: CASE EVENT DATE: 2014
